FAERS Safety Report 5263697-2 (Version None)
Quarter: 2007Q1

REPORT INFORMATION
  Report Type: 
  Country: None (occurrence: None)
  Receive Date: 20070312
  Receipt Date: 20070312
  Transmission Date: 20070707
  Serious: Yes (Life-Threatening, Disabling)
  Sender: FDA-Public Use
  Company Number: None

PATIENT
  Sex: Female
  Weight: 49.8957 kg

DRUGS (4)
  1. SERTRALINE [Suspect]
     Indication: MAJOR DEPRESSION
     Dosage: 2 TABLETS 1 IN MORNING PO
     Route: 048
     Dates: start: 20050910, end: 20060213
  2. WELLBUTRIN [Concomitant]
  3. KLONAPIN [Concomitant]
  4. TOPAMAX [Concomitant]

REACTIONS (5)
  - DEPRESSION [None]
  - PHARMACEUTICAL PRODUCT COMPLAINT [None]
  - SUICIDAL IDEATION [None]
  - THERAPEUTIC RESPONSE UNEXPECTED WITH DRUG SUBSTITUTION [None]
  - WEIGHT DECREASED [None]
